FAERS Safety Report 4331426-2 (Version None)
Quarter: 2004Q1

REPORT INFORMATION
  Report Type: 
  Country: None (occurrence: None)
  Receive Date: 20040329
  Receipt Date: 20040318
  Transmission Date: 20041129
  Serious: Yes (Disabling, Other)
  Sender: FDA-Public Use
  Company Number: 230046M04USA

PATIENT
  Age: 38 Year
  Sex: Female

DRUGS (5)
  1. REBIF [Suspect]
     Indication: MULTIPLE SCLEROSIS
     Dosage: 44 MCG, 3 IN 1 WEEKS, SUBCUTANEOUS
     Route: 058
     Dates: start: 20020701, end: 20031201
  2. FLUOXETINE HCL [Concomitant]
  3. TOLTERODINE TARTRATE [Concomitant]
  4. MODAFINIL [Concomitant]
  5. BACLOFEN [Concomitant]

REACTIONS (5)
  - DRUG INEFFECTIVE [None]
  - EPISTAXIS [None]
  - INFECTION [None]
  - LEUKOCYTOCLASTIC VASCULITIS [None]
  - SCAR [None]
